FAERS Safety Report 6712021-4 (Version None)
Quarter: 2010Q2

REPORT INFORMATION
  Report Type: 
  Country: None (occurrence: None)
  Receive Date: 20100505
  Receipt Date: 20100504
  Transmission Date: 20101027
  Serious: Yes (Hospitalization)
  Sender: FDA-Public Use
  Company Number: FR-PFIZER INC-2006020774

PATIENT
  Age: 56 Year
  Sex: Male
  Weight: 101 kg

DRUGS (5)
  1. SUNITINIB MALATE [Suspect]
     Indication: RENAL CANCER
     Dosage: 37.5 MG, 1X/DAY
     Route: 048
     Dates: start: 20051129
  2. LEVOTHYROXINE SODIUM [Concomitant]
     Dosage: UNK
     Route: 048
     Dates: start: 19990101
  3. MANIDIPINE [Concomitant]
     Dosage: UNK
     Route: 048
     Dates: start: 20051101, end: 20060208
  4. NEBIVOLOL [Concomitant]
     Dosage: UNK
     Route: 048
     Dates: start: 20051212
  5. CODEINE PHOSPHATE AND ACETAMINOPHEN [Concomitant]
     Dosage: UNK
     Route: 048
     Dates: start: 20051220

REACTIONS (4)
  - CONDITION AGGRAVATED [None]
  - HYPERTENSION [None]
  - NEPHROTIC SYNDROME [None]
  - PROTEINURIA [None]
